FAERS Safety Report 4682175-2 (Version None)
Quarter: 2005Q2

REPORT INFORMATION
  Report Type: 
  Country: None (occurrence: None)
  Receive Date: 20050602
  Receipt Date: 20050503
  Transmission Date: 20051028
  Serious: Yes (Hospitalization)
  Sender: FDA-Public Use
  Company Number: 10997

PATIENT
  Age: 72 Year
  Sex: Female

DRUGS (6)
  1. NITROGLYCERIN [Suspect]
     Indication: PAIN
     Route: 060
     Dates: start: 20050418, end: 20050418
  2. LANSOPRAZOLE [Concomitant]
  3. FRUSEMIDE [Concomitant]
  4. ASPIRIN [Concomitant]
  5. LISINOPRIL [Concomitant]
  6. SIMVASTATIN [Concomitant]

REACTIONS (4)
  - DIZZINESS [None]
  - HYPERHIDROSIS [None]
  - HYPOTENSION [None]
  - SYNCOPE [None]
